FAERS Safety Report 17662985 (Version 4)
Quarter: 2020Q3

REPORT INFORMATION
  Report Type: Spontaneous
  Country: US (occurrence: US)
  Receive Date: 20200413
  Receipt Date: 20200721
  Transmission Date: 20201102
  Serious: Yes (Hospitalization)
  Sender: FDA-Public Use
  Company Number: US-ACTELION-A-US2020-204172

PATIENT
  Age: 66 Year
  Sex: Female
  Weight: 120.18 kg

DRUGS (3)
  1. REVATIO [Concomitant]
     Active Substance: SILDENAFIL CITRATE
  2. OPSUMIT [Suspect]
     Active Substance: MACITENTAN
     Indication: PULMONARY ARTERIAL HYPERTENSION
     Dosage: 10 MG, QD
     Route: 048
  3. FLOLAN [Concomitant]
     Active Substance: EPOPROSTENOL SODIUM

REACTIONS (7)
  - Diabetes mellitus [Unknown]
  - Altered state of consciousness [Unknown]
  - Weight decreased [Unknown]
  - Catheter management [Unknown]
  - Infusion site infection [Unknown]
  - Vascular device infection [Unknown]
  - Sepsis [Unknown]

NARRATIVE: CASE EVENT DATE: 202004
